FAERS Safety Report 9290873 (Version 2)
Quarter: 2013Q2

REPORT INFORMATION
  Report Type: Report from Study
  Country: FR (occurrence: FR)
  Receive Date: 20130515
  Receipt Date: 20130517
  Transmission Date: 20140414
  Serious: Yes (Death, Other)
  Sender: FDA-Public Use
  Company Number: FR-BAYER-2013-056377

PATIENT
  Age: 81 Year
  Sex: Female

DRUGS (6)
  1. REGORAFENIB [Suspect]
     Indication: COLORECTAL CANCER METASTATIC
     Dosage: 120 MG, QD
     Route: 048
     Dates: start: 20130416, end: 20130507
  2. MONOTILDIEM [Concomitant]
     Indication: HYPERTENSION
     Dosage: 300 MG, QD FOR SEVERAL YEARS
     Route: 048
  3. ATACAND [CANDESARTAN CILEXETIL] [Concomitant]
     Indication: HYPERTENSION
     Dosage: 16 MG, QD FOR MORE THAN 20 YEARS
     Route: 048
  4. FIXICAL D3 [Concomitant]
     Indication: OSTEOPOROSIS
     Dosage: 1000 MG, QD FOR MORE THAN 10 YEARS
     Route: 048
  5. PULMICORT [Concomitant]
     Indication: ASTHMA
     Dosage: 2 DF, BID FOR SEVERAL YEARS
     Route: 048
  6. FORADIL [Concomitant]
     Dosage: FOR SEVERAL YEARS

REACTIONS (6)
  - Cerebrovascular accident [Fatal]
  - Arrhythmia [None]
  - Stomatitis [Not Recovered/Not Resolved]
  - Palmar-plantar erythrodysaesthesia syndrome [Not Recovered/Not Resolved]
  - Hypertension [Recovered/Resolved]
  - Dry skin [Not Recovered/Not Resolved]
